FAERS Safety Report 5917264-5 (Version None)
Quarter: 2008Q4

REPORT INFORMATION
  Report Type: 
  Country: None (occurrence: None)
  Receive Date: 20081014
  Receipt Date: 20081002
  Transmission Date: 20090506
  Serious: Yes (Hospitalization)
  Sender: FDA-Public Use
  Company Number: US-ELI_LILLY_AND_COMPANY-US200808003489

PATIENT
  Age: 92 Year
  Sex: Female

DRUGS (5)
  1. FORTEO [Suspect]
     Dosage: UNK, UNKNOWN
     Dates: start: 20061201, end: 20080326
  2. FORTEO [Suspect]
     Dosage: UNK, UNKNOWN
     Dates: start: 20080812
  3. VITAMINS [Concomitant]
  4. CALCIUM [Concomitant]
  5. VITAMIN D [Concomitant]

REACTIONS (5)
  - ARTHRITIS [None]
  - ASTHENIA [None]
  - GASTROINTESTINAL DISORDER [None]
  - INTESTINAL STRANGULATION [None]
  - VITAMIN D DEFICIENCY [None]
